FAERS Safety Report 25433859 (Version 3)
Quarter: 2025Q3

REPORT INFORMATION
  Report Type: Spontaneous
  Country: EU (occurrence: EU)
  Receive Date: 20250613
  Receipt Date: 20250715
  Transmission Date: 20251020
  Serious: Yes (Life-Threatening, Hospitalization, Other)
  Sender: RANBAXY
  Company Number: EU-SUN PHARMACEUTICAL INDUSTRIES LTD-2025R1-511689

PATIENT
  Age: 35 Year
  Sex: Male

DRUGS (2)
  1. PREDNISONE [Suspect]
     Active Substance: PREDNISONE
     Indication: Crohn^s disease
     Route: 065
  2. AZATHIOPRINE [Suspect]
     Active Substance: AZATHIOPRINE
     Indication: Crohn^s disease
     Route: 065

REACTIONS (7)
  - Disseminated varicella [Unknown]
  - Hepatorenal syndrome [Unknown]
  - Thrombocytopenia [Unknown]
  - Coagulopathy [Unknown]
  - Disseminated intravascular coagulation [Unknown]
  - Hepatic failure [Unknown]
  - Osteochondrosis [Unknown]
